FAERS Safety Report 4362628-7 (Version None)
Quarter: 2004Q2

REPORT INFORMATION
  Report Type: 
  Country: None (occurrence: None)
  Receive Date: 20040520
  Receipt Date: 20040510
  Transmission Date: 20050107
  Serious: Yes (Death)
  Sender: FDA-Public Use
  Company Number: US-JNJFOC-20040204151

PATIENT
  Age: 57 Year
  Sex: Female

DRUGS (7)
  1. DITROPAN [Suspect]
     Indication: DRUG USE FOR UNKNOWN INDICATION
     Dosage: 5 MG, ORAL
     Route: 048
  2. ALBUTEROL INHALER (SALBUTAMOL) [Concomitant]
  3. GLUCOPHAGE [Concomitant]
  4. PREMARIN [Concomitant]
  5. PROZAC [Concomitant]
  6. ADVAIR (SERETIDE MITE) [Concomitant]
  7. VOLMAX [Concomitant]

REACTIONS (1)
  - CARCINOMA [None]
